FAERS Safety Report 7621645-1 (Version None)
Quarter: 2011Q3

REPORT INFORMATION
  Report Type: 
  Country: None (occurrence: None)
  Receive Date: 20110719
  Receipt Date: 20101006
  Transmission Date: 20111222
  Serious: Yes (Other)
  Sender: FDA-Public Use
  Company Number: BE-BAYER-201041735GPV

PATIENT
  Age: 71 Year
  Sex: Female

DRUGS (3)
  1. MOXIFLOXACIN HCL [Suspect]
     Indication: RESPIRATORY TRACT INFECTION
     Route: 048
  2. THYROID HORMONES [Concomitant]
     Indication: HYPOTHYROIDISM
  3. ISOPTIN [Concomitant]
     Indication: ARRHYTHMIA
     Dosage: 360 MG (DAILY DOSE), TID, ORAL
     Route: 048

REACTIONS (3)
  - TACHYCARDIA [None]
  - HYPERTENSION [None]
  - DYSPNOEA [None]
